FAERS Safety Report 8139001-9 (Version None)
Quarter: 2012Q1

REPORT INFORMATION
  Report Type: 
  Country: None (occurrence: None)
  Receive Date: 20120215
  Receipt Date: 20120202
  Transmission Date: 20120608
  Serious: Yes (Hospitalization)
  Sender: FDA-Public Use
  Company Number: DE-ELI_LILLY_AND_COMPANY-DE201201007725

PATIENT
  Age: 60 Year
  Sex: Male

DRUGS (4)
  1. CISPLATIN [Suspect]
     Indication: NON-SMALL CELL LUNG CANCER
     Dosage: 60 MG/M2, EVERY THREE WEEKS
     Route: 042
     Dates: start: 20111214
  2. CETUXIMAB [Suspect]
     Indication: NON-SMALL CELL LUNG CANCER
     Dosage: 250 MG/M2, WEEKLY (1/W)
     Route: 042
     Dates: start: 20111214, end: 20120111
  3. CETUXIMAB [Suspect]
     Dosage: 250 MG/M2, WEEKLY (1/W)
     Dates: start: 20120201
  4. GEMCITABINE HYDROCHLORIDE [Suspect]
     Indication: NON-SMALL CELL LUNG CANCER
     Dosage: DAY ONE AND EIGHT OF THREE WEEK CYCLE
     Route: 042
     Dates: start: 20111214

REACTIONS (3)
  - THROMBOCYTOPENIA [None]
  - PROCTITIS [None]
  - LEUKOPENIA [None]
